FAERS Safety Report 6445950-X (Version None)
Quarter: 2009Q4

REPORT INFORMATION
  Report Type: 
  Country: None (occurrence: None)
  Receive Date: 20091119
  Receipt Date: 20090305
  Transmission Date: 20100525
  Serious: No
  Sender: FDA-Public Use
  Company Number: A0771851A

PATIENT
  Age: 60 Year
  Sex: Female

DRUGS (7)
  1. BUPROPION HYDROCHLORIDE [Suspect]
     Indication: DEPRESSION
     Dosage: 200MG TWICE PER DAY
     Route: 048
     Dates: start: 20080901
  2. LEXAPRO [Concomitant]
  3. METHYLPHENIDATE HCL [Concomitant]
  4. TRAZODONE HCL [Concomitant]
  5. LEVOTHYROXINE SODIUM [Concomitant]
  6. DIOVAN [Concomitant]
  7. M.V.I. [Concomitant]

REACTIONS (1)
  - PRURITUS [None]
